FAERS Safety Report 16322065 (Version 6)
Quarter: 2020Q2

REPORT INFORMATION
  Report Type: Report from Study
  Country: US (occurrence: US)
  Receive Date: 20190516
  Receipt Date: 20200413
  Transmission Date: 20200713
  Serious: Yes (Hospitalization)
  Sender: FDA-Public Use
  Company Number: US-ACTELION-A-NJ2019-187050

PATIENT
  Age: 64 Year
  Sex: Female
  Weight: 72.56 kg

DRUGS (3)
  1. VELETRI [Suspect]
     Active Substance: EPOPROSTENOL
     Indication: PULMONARY ARTERIAL HYPERTENSION
     Dosage: 30 NG/KG, PER MIN
     Route: 042
  2. OPSUMIT [Suspect]
     Active Substance: MACITENTAN
     Indication: PULMONARY ARTERIAL HYPERTENSION
     Dosage: 10 MG, QD
     Route: 048
     Dates: start: 20180909
  3. SILDENAFIL. [Concomitant]
     Active Substance: SILDENAFIL

REACTIONS (14)
  - Palpitations [Unknown]
  - Device dislocation [Recovered/Resolved]
  - Catheter site discharge [Recovered/Resolved]
  - Catheter site swelling [Recovered/Resolved]
  - Pulmonary arterial hypertension [Recovered/Resolved]
  - Device related infection [Recovered/Resolved with Sequelae]
  - Catheter site pain [Recovered/Resolved]
  - Catheter site ulcer [Unknown]
  - Catheter site infection [Recovered/Resolved]
  - Catheter site erythema [Unknown]
  - Device leakage [Recovered/Resolved]
  - Catheter management [Recovered/Resolved]
  - Middle insomnia [Unknown]
  - Nocturnal dyspnoea [Unknown]

NARRATIVE: CASE EVENT DATE: 201902
